FAERS Safety Report 22532167 (Version 1)
Quarter: 2023Q2

REPORT INFORMATION
  Report Type: Spontaneous
  Country: US (occurrence: None)
  Receive Date: 20230606
  Receipt Date: 20230606
  Transmission Date: 20230722
  Serious: Yes (Other)
  Sender: FDA-Public Use
  Company Number: None

PATIENT
  Age: 67 Year
  Sex: Female
  Weight: 88.45 kg

DRUGS (15)
  1. SCEMBLIX [Suspect]
     Active Substance: ASCIMINIB HYDROCHLORIDE
     Indication: Chronic myeloid leukaemia
     Dosage: FREQUENCY : TWICE A DAY;?
     Route: 048
     Dates: start: 20230518, end: 20230603
  2. SCEMBLIX [Suspect]
     Active Substance: ASCIMINIB HYDROCHLORIDE
     Indication: Philadelphia chromosome positive
  3. ZOLOFT [Concomitant]
     Active Substance: SERTRALINE HYDROCHLORIDE
  4. VERAPAMIL HCL [Concomitant]
     Active Substance: VERAPAMIL HYDROCHLORIDE
  5. TRAMADOL HCL [Concomitant]
     Active Substance: TRAMADOL HYDROCHLORIDE
  6. REMERON [Concomitant]
     Active Substance: MIRTAZAPINE
  7. PANTOPRAZOLE SODIUM [Concomitant]
     Active Substance: PANTOPRAZOLE SODIUM
  8. NIASPAN [Concomitant]
     Active Substance: NIACIN
  9. Lac-hydrin External Cream 12% [Concomitant]
  10. CLONAZEPAM [Concomitant]
     Active Substance: CLONAZEPAM
  11. BOSULIF [Concomitant]
     Active Substance: BOSUTINIB MONOHYDRATE
  12. BISOPROLOL FUMARATE [Concomitant]
     Active Substance: BISOPROLOL FUMARATE
  13. ASPIRIN [Concomitant]
     Active Substance: ASPIRIN
  14. ALBUTEROL SULFATE [Concomitant]
     Active Substance: ALBUTEROL SULFATE
  15. SCEMBLIX [Concomitant]
     Active Substance: ASCIMINIB HYDROCHLORIDE
     Indication: Chronic myeloid leukaemia
     Dates: start: 20230518

REACTIONS (5)
  - Abdominal pain upper [None]
  - Burning sensation [None]
  - Dysuria [None]
  - Constipation [None]
  - Odynophagia [None]

NARRATIVE: CASE EVENT DATE: 20230601
